FAERS Safety Report 5241074-8 (Version None)
Quarter: 2007Q1

REPORT INFORMATION
  Report Type: 
  Country: None (occurrence: None)
  Receive Date: 20070214
  Receipt Date: 20070214
  Transmission Date: 20070707
  Serious: Yes (Life-Threatening)
  Sender: FDA-Public Use
  Company Number: None

PATIENT
  Age: 58 Year
  Sex: Male
  Weight: 68.0396 kg

DRUGS (2)
  1. ZOMETA [Suspect]
     Indication: BONE DISORDER
     Dosage: ONE PER MONTH  IV DRIP
     Route: 041
     Dates: start: 20030901, end: 20060401
  2. ZOMETA [Suspect]
     Indication: NEOPLASM MALIGNANT
     Dosage: ONE PER MONTH  IV DRIP
     Route: 041
     Dates: start: 20030901, end: 20060401

REACTIONS (2)
  - OSTEONECROSIS [None]
  - TOOTH LOSS [None]
